FAERS Safety Report 7914588-7 (Version None)
Quarter: 2011Q4

REPORT INFORMATION
  Report Type: 
  Country: None (occurrence: None)
  Receive Date: 20111115
  Receipt Date: 20111102
  Transmission Date: 20120403
  Serious: Yes (Other)
  Sender: FDA-Public Use
  Company Number: PHHY2011GR96981

PATIENT

DRUGS (1)
  1. CYCLOSPORINE [Suspect]
     Indication: PSORIATIC ARTHROPATHY
     Dosage: 2.5-3.75 MG/KG/DAY

REACTIONS (1)
  - ERECTILE DYSFUNCTION [None]
